FAERS Safety Report 9103600 (Version 1)
Quarter: 2013Q1

REPORT INFORMATION
  Report Type: Spontaneous
  Country: DE (occurrence: DE)
  Receive Date: 20130219
  Receipt Date: 20130219
  Transmission Date: 20140127
  Serious: Yes (Hospitalization, Other)
  Sender: FDA-Public Use
  Company Number: DE-UCBSA-076265

PATIENT
  Sex: Female

DRUGS (18)
  1. KEPPRA [Suspect]
     Indication: EPILEPSY
     Route: 048
  2. KEPPRA [Suspect]
     Indication: EPILEPSY
     Dosage: UNKNOWN DOSE
     Dates: start: 2005, end: 2006
  3. KEPPRA [Suspect]
     Indication: EPILEPSY
  4. VIMPAT [Suspect]
     Indication: EPILEPSY
     Route: 048
     Dates: start: 20120917
  5. VIMPAT [Suspect]
     Indication: CONVULSION
     Route: 042
     Dates: start: 20120914, end: 20120917
  6. LAMICTAL [Suspect]
     Indication: EPILEPSY
     Dosage: 50-0-25 MG
     Route: 048
     Dates: start: 20120921, end: 20120921
  7. LAMICTAL [Suspect]
     Indication: EPILEPSY
     Route: 048
     Dates: start: 20120922, end: 20120922
  8. LAMICTAL [Suspect]
     Indication: EPILEPSY
     Route: 048
     Dates: start: 20120923, end: 20120923
  9. LAMICTAL [Suspect]
     Indication: EPILEPSY
     Dosage: 100-150-200 MG
  10. FOLIC ACID CT [Concomitant]
     Indication: PROPHYLAXIS
     Route: 048
     Dates: start: 20120913
  11. PANTOZOL [Concomitant]
     Indication: PROPHYLAXIS
     Route: 048
     Dates: start: 20120913
  12. FRISIUM [Concomitant]
     Indication: EPILEPSY
     Route: 048
     Dates: end: 20120923
  13. FRISIUM [Concomitant]
     Indication: EPILEPSY
     Dosage: 5-10-10 MG
     Route: 048
     Dates: start: 20120924, end: 20120930
  14. FRISIUM [Concomitant]
     Indication: EPILEPSY
     Dosage: 5-5-10 MG
     Route: 048
     Dates: start: 20121001, end: 20121007
  15. FRISIUM [Concomitant]
     Indication: EPILEPSY
     Route: 048
     Dates: start: 20121008
  16. KALINOR [Concomitant]
     Indication: HYPOKALAEMIA
     Route: 048
     Dates: start: 20120914
  17. PREDNISONE [Concomitant]
     Indication: SYSTEMIC LUPUS ERYTHEMATOSUS
     Route: 048
     Dates: start: 20120917
  18. ACYCLOVIR [Concomitant]

REACTIONS (4)
  - Status epilepticus [Unknown]
  - Epilepsy [Unknown]
  - Pregnancy [Unknown]
  - Overdose [Unknown]
